FAERS Safety Report 5148072-3 (Version None)
Quarter: 2006Q4

REPORT INFORMATION
  Report Type: 
  Country: None (occurrence: None)
  Receive Date: 20061110
  Receipt Date: 20060823
  Transmission Date: 20070319
  Serious: Yes (Hospitalization)
  Sender: FDA-Public Use
  Company Number: DE-BAYER-200611095BVD

PATIENT
  Age: 73 Year
  Weight: 72 kg

DRUGS (11)
  1. AVELOX [Suspect]
     Indication: DRUG USE FOR UNKNOWN INDICATION
     Route: 048
     Dates: start: 20060723, end: 20060802
  2. CARDULAR [Concomitant]
     Route: 065
  3. NEURO [Concomitant]
     Route: 065
  4. TRAMADOL HCL [Concomitant]
     Route: 065
  5. KATADOLON [Concomitant]
     Route: 065
  6. NORVASC [Concomitant]
     Route: 065
  7. NEBILET [Concomitant]
     Route: 065
  8. ASPIRIN [Concomitant]
     Route: 065
  9. FURORESE [Concomitant]
     Route: 065
  10. SPIRONOLACTONE [Concomitant]
     Route: 065
  11. LISINOPRIL [Concomitant]
     Route: 065

REACTIONS (2)
  - ECCHYMOSIS [None]
  - PETECHIAE [None]
